FAERS Safety Report 4514520-2 (Version None)
Quarter: 2004Q3

REPORT INFORMATION
  Report Type: 
  Country: None (occurrence: None)
  Receive Date: 20040928
  Receipt Date: 20040707
  Transmission Date: 20050211
  Serious: No
  Sender: FDA-Public Use
  Company Number: 04P-163-0266017-00

PATIENT
  Age: 77 Year
  Sex: Male
  Weight: 81.6475 kg

DRUGS (7)
  1. HUMIRA [Suspect]
     Indication: RHEUMATOID ARTHRITIS
     Dosage: 40 MG, 1 IN 2 WK, SUBCUTANEOUS
     Route: 058
     Dates: start: 20040616
  2. METHOTREXATE [Concomitant]
  3. PREDNISONE [Concomitant]
  4. ALLOPURINOL [Concomitant]
  5. ACETYLSALICYLIC ACID [Concomitant]
  6. MULTI-VITAMINS [Concomitant]
  7. BUCINDOLOL HYDROCHLORIDE [Concomitant]

REACTIONS (2)
  - CONDITION AGGRAVATED [None]
  - MUSCULOSKELETAL DISCOMFORT [None]
